FAERS Safety Report 10650912 (Version 1)
Quarter: 2014Q4

REPORT INFORMATION
  Report Type: Report from Study
  Country: CO (occurrence: CO)
  Receive Date: 20141215
  Receipt Date: 20141215
  Transmission Date: 20150529
  Serious: Yes (Death)
  Sender: FDA-Public Use
  Company Number: CO-ROCHE-1507939

PATIENT
  Sex: Male
  Weight: 85 kg

DRUGS (1)
  1. RANIBIZUMAB [Suspect]
     Active Substance: RANIBIZUMAB
     Indication: VISUAL ACUITY REDUCED
     Dosage: DOSAGE: AMPOULE
     Route: 050

REACTIONS (1)
  - Aneurysm ruptured [Fatal]
